FAERS Safety Report 6167828-1 (Version None)
Quarter: 2009Q2

REPORT INFORMATION
  Report Type: 
  Country: None (occurrence: None)
  Receive Date: 20090423
  Receipt Date: 20090413
  Transmission Date: 20091009
  Serious: Yes (Life-Threatening)
  Sender: FDA-Public Use
  Company Number: URSO-2009-043

PATIENT
  Age: 75 Year
  Sex: Male

DRUGS (2)
  1. URSODIOL [Suspect]
     Indication: HEPATITIS C VIRUS TEST
     Dosage: 900 MG ORAL
     Route: 048
     Dates: start: 20070309
  2. URSODIOL [Suspect]
     Indication: LIVER DISORDER
     Dosage: 900 MG ORAL
     Route: 048
     Dates: start: 20070309

REACTIONS (2)
  - ANAEMIA [None]
  - OFF LABEL USE [None]
